FAERS Safety Report 9922376 (Version 1)
Quarter: 2014Q1

REPORT INFORMATION
  Report Type: Report from Study
  Country: ES (occurrence: ES)
  Receive Date: 20140225
  Receipt Date: 20140225
  Transmission Date: 20141002
  Serious: Yes (Death)
  Sender: FDA-Public Use
  Company Number: ES-BAYER-2014-028726

PATIENT
  Age: 84 Year
  Sex: Male

DRUGS (1)
  1. ADIRO 300 MG COMPRIMIDOS GASTRORRESISTENTES EFG, 30 COMPRIMIDOS [Suspect]
     Indication: ISCHAEMIC STROKE
     Dosage: 300 MG, QD
     Route: 065
     Dates: start: 2011, end: 20140127

REACTIONS (1)
  - Subdural haematoma [Fatal]
